FAERS Safety Report 8178733-3 (Version None)
Quarter: 2012Q1

REPORT INFORMATION
  Report Type: 
  Country: None (occurrence: None)
  Receive Date: 20120301
  Receipt Date: 20120301
  Transmission Date: 20120608
  Serious: Yes (Hospitalization)
  Sender: FDA-Public Use
  Company Number: None

PATIENT
  Age: 59 Year
  Sex: Female
  Weight: 90.718 kg

DRUGS (2)
  1. ATORVASTATIN [Suspect]
     Indication: MYOCARDIAL INFARCTION
     Dosage: 80 MG
     Route: 048
     Dates: start: 20120102, end: 20120105
  2. CRESTOR [Concomitant]
     Indication: BLOOD CHOLESTEROL ABNORMAL
     Dosage: 5 MG
     Route: 048
     Dates: start: 20120106, end: 20120109

REACTIONS (12)
  - BLOOD MAGNESIUM DECREASED [None]
  - MUSCLE INJURY [None]
  - INTERVERTEBRAL DISC PROTRUSION [None]
  - ASTHENIA [None]
  - WALKING AID USER [None]
  - MUSCULAR WEAKNESS [None]
  - BLOOD SODIUM DECREASED [None]
  - FALL [None]
  - IMPAIRED WORK ABILITY [None]
  - CONTUSION [None]
  - HEAD INJURY [None]
  - NERVE STIMULATION TEST ABNORMAL [None]
